FAERS Safety Report 5531142-5 (Version None)
Quarter: 2007Q4

REPORT INFORMATION
  Report Type: 
  Country: None (occurrence: None)
  Receive Date: 20071130
  Receipt Date: 20071121
  Transmission Date: 20080405
  Serious: Yes (Other)
  Sender: FDA-Public Use
  Company Number: IE-PFIZER INC-2007098721

PATIENT
  Age: 53 Year
  Sex: Female

DRUGS (5)
  1. LIPITOR [Suspect]
     Route: 048
  2. ACOMPLIA [Concomitant]
  3. GLUCOPHAGE [Concomitant]
  4. ACETYLSALICYLIC ACID SRT [Concomitant]
  5. COZAAR [Concomitant]

REACTIONS (1)
  - PAIN IN EXTREMITY [None]
